FAERS Safety Report 7281362-7 (Version None)
Quarter: 2011Q1

REPORT INFORMATION
  Report Type: 
  Country: None (occurrence: None)
  Receive Date: 20110208
  Receipt Date: 20110119
  Transmission Date: 20110831
  Serious: No
  Sender: FDA-Public Use
  Company Number: US-B.I. PHARMACEUTICALS,INC./RIDGEFIELD-2011-BP-02005BP

PATIENT
  Sex: Male

DRUGS (4)
  1. VYTORIN [Concomitant]
     Indication: HYPERTENSION
  2. PRADAXA [Suspect]
     Indication: ATRIAL FIBRILLATION
     Dosage: 300 MG
     Route: 048
     Dates: start: 20110104, end: 20110118
  3. PRADAXA [Suspect]
     Dosage: 150 MG
     Route: 048
     Dates: start: 20110118
  4. ATENOLOL [Concomitant]
     Indication: HYPERTENSION

REACTIONS (1)
  - HEADACHE [None]
